FAERS Safety Report 19156980 (Version 2)
Quarter: 2021Q2

REPORT INFORMATION
  Report Type: Report from Study
  Country: AU (occurrence: AU)
  Receive Date: 20210420
  Receipt Date: 20210427
  Transmission Date: 20210717
  Serious: Yes (Hospitalization)
  Sender: FDA-Public Use
  Company Number: NVSC2021AU080297

PATIENT
  Age: 77 Year
  Sex: Female

DRUGS (1)
  1. MAYZENT [Suspect]
     Active Substance: SIPONIMOD
     Indication: SECONDARY PROGRESSIVE MULTIPLE SCLEROSIS
     Dosage: 2 MG, QD
     Route: 048
     Dates: start: 20210406, end: 20210419

REACTIONS (8)
  - Anxiety [Unknown]
  - Panic attack [Unknown]
  - Blood pressure increased [Unknown]
  - Muscle spasms [Unknown]
  - Gait disturbance [Unknown]
  - Heart rate decreased [Recovering/Resolving]
  - Hyperventilation [Unknown]
  - Musculoskeletal stiffness [Unknown]

NARRATIVE: CASE EVENT DATE: 20210406
